FAERS Safety Report 8087718-7 (Version None)
Quarter: 2012Q1

REPORT INFORMATION
  Report Type: 
  Country: None (occurrence: None)
  Receive Date: 20120128
  Receipt Date: 20110420
  Transmission Date: 20120608
  Serious: No
  Sender: FDA-Public Use
  Company Number: US-ABBOTT-11P-163-0721150-00

PATIENT
  Age: 43 Year
  Sex: Female

DRUGS (3)
  1. HUMIRA [Suspect]
     Indication: PSORIASIS
     Dosage: INTERRUPTED
     Dates: start: 20071001, end: 20110106
  2. PROTONIX [Concomitant]
     Indication: GASTROOESOPHAGEAL REFLUX DISEASE
     Dates: start: 20010101
  3. UNKNOWN STEROID INJECITONS [Concomitant]
     Indication: PRODUCT USED FOR UNKNOWN INDICATION
     Dosage: EVERY FOUR MONTHS
     Dates: start: 20080101

REACTIONS (10)
  - BLOOD TRIGLYCERIDES INCREASED [None]
  - LARYNGITIS [None]
  - NAUSEA [None]
  - PSORIASIS [None]
  - VOMITING [None]
  - JAUNDICE [None]
  - STREPTOCOCCUS TEST POSITIVE [None]
  - BLOOD CHOLESTEROL INCREASED [None]
  - HEPATIC ENZYME INCREASED [None]
  - IMMUNOSUPPRESSION [None]
